FAERS Safety Report 19955514 (Version 1)
Quarter: 2021Q4

REPORT INFORMATION
  Report Type: Spontaneous
  Country: GT (occurrence: GT)
  Receive Date: 20211014
  Receipt Date: 20211014
  Transmission Date: 20220303
  Serious: Yes (Other)
  Sender: FDA-Public Use
  Company Number: GT-NOVARTISPH-NVSC2021GT233895

PATIENT
  Age: 32 Year
  Sex: Female

DRUGS (1)
  1. CERTICAN [Suspect]
     Active Substance: EVEROLIMUS
     Indication: Prophylaxis
     Dosage: 1 MG, Q12H (4 TABLETS OF 0.25 MG EVERY 12 HOURS)
     Route: 065

REACTIONS (1)
  - Pancreatitis [Unknown]
